FAERS Safety Report 12845644 (Version 2)
Quarter: 2016Q4

REPORT INFORMATION
  Report Type: Spontaneous
  Country: BR (occurrence: BR)
  Receive Date: 20161013
  Receipt Date: 20161017
  Transmission Date: 20170207
  Serious: Yes (Other)
  Sender: FDA-Public Use
  Company Number: BR-GLAXOSMITHKLINE-PHHY2014BR116755

PATIENT

DRUGS (6)
  1. AMOXIL SODIUM [Concomitant]
     Dosage: UNK
     Route: 065
     Dates: start: 20140901
  2. QUEOPINE [Suspect]
     Active Substance: QUETIAPINE FUMARATE
     Indication: PRODUCT USED FOR UNKNOWN INDICATION
     Dosage: 1 UNK, QD
     Route: 048
     Dates: start: 20160816, end: 20160914
  3. AAS [Concomitant]
     Active Substance: ASPIRIN
     Dosage: UNK
     Route: 065
     Dates: start: 2004
  4. RIVOTRIL [Concomitant]
     Active Substance: CLONAZEPAM
     Dosage: 1 MG, QD
     Route: 048
  5. CATAFLAM (DICLOFENAC DIETHYLAMMONIUM SALT) [Suspect]
     Active Substance: DICLOFENAC DIETHYLAMINE
     Indication: PAIN
     Dosage: UNK, QD
     Route: 061
     Dates: start: 20140901, end: 20140902
  6. CRESTOR [Suspect]
     Active Substance: ROSUVASTATIN CALCIUM
     Indication: BLOOD CHOLESTEROL
     Dosage: 10 MG, QD
     Route: 048

REACTIONS (13)
  - Burning sensation [Recovered/Resolved]
  - Application site pruritus [Unknown]
  - Hypertension [Not Recovered/Not Resolved]
  - Blister [Unknown]
  - Somnolence [Recovered/Resolved]
  - Fatigue [Unknown]
  - Immobile [Unknown]
  - Pain [Unknown]
  - Dizziness [Recovered/Resolved]
  - Confusional state [Not Recovered/Not Resolved]
  - Gastric disorder [Recovered/Resolved]
  - Dry mouth [Recovered/Resolved]
  - Condition aggravated [Unknown]

NARRATIVE: CASE EVENT DATE: 20160814
